FAERS Safety Report 17136453 (Version 2)
Quarter: 2020Q1

REPORT INFORMATION
  Report Type: Spontaneous
  Country: US (occurrence: US)
  Receive Date: 20191210
  Receipt Date: 20200103
  Transmission Date: 20200409
  Serious: No
  Sender: FDA-Public Use
  Company Number: US-SA-2019SA338545

PATIENT
  Age: 64 Year
  Sex: Female

DRUGS (2)
  1. DUPIXENT [Suspect]
     Active Substance: DUPILUMAB
     Dosage: 300 MG, QOW
     Route: 058
     Dates: start: 20191209
  2. DUPIXENT [Suspect]
     Active Substance: DUPILUMAB
     Indication: ASTHMA
     Dosage: 600 MG, 1X
     Route: 058
     Dates: start: 20191125, end: 20191125

REACTIONS (7)
  - Toothache [Unknown]
  - Swelling of eyelid [Unknown]
  - Paranasal sinus discomfort [Unknown]
  - Pain in jaw [Recovered/Resolved]
  - Eye swelling [Not Recovered/Not Resolved]
  - Tooth abscess [Unknown]
  - Eye oedema [Recovered/Resolved]

NARRATIVE: CASE EVENT DATE: 2019
